FAERS Safety Report 14223971 (Version 1)
Quarter: 2017Q4

REPORT INFORMATION
  Report Type: Spontaneous
  Country: US (occurrence: US)
  Receive Date: 20171122
  Receipt Date: 20171122
  Transmission Date: 20180321
  Serious: Yes (Life-Threatening, Disabling)
  Sender: FDA-Public Use
  Company Number: None

PATIENT
  Age: 37 Year
  Sex: Female
  Weight: 72 kg

DRUGS (3)
  1. TRIAMCINOLONE [Suspect]
     Active Substance: TRIAMCINOLONE
  2. CLOBETESOL [Suspect]
     Active Substance: CLOBETASOL
     Indication: DERMATITIS ATOPIC
     Route: 061
  3. DUPIXENT [Concomitant]
     Active Substance: DUPILUMAB

REACTIONS (9)
  - Infection [None]
  - Alopecia [None]
  - Drug ineffective [None]
  - Nightmare [None]
  - Madarosis [None]
  - Dependence [None]
  - Fatigue [None]
  - Pain [None]
  - Depression [None]

NARRATIVE: CASE EVENT DATE: 20170424
